FAERS Safety Report 9775657 (Version 5)
Quarter: 2014Q2

REPORT INFORMATION
  Report Type: Spontaneous
  Country: DE (occurrence: DE)
  Receive Date: 20131220
  Receipt Date: 20140616
  Transmission Date: 20141212
  Serious: Yes (Hospitalization)
  Sender: FDA-Public Use
  Company Number: DE-PFIZER INC-2013364000

PATIENT
  Age: 70 Year
  Sex: Female
  Weight: 66 kg

DRUGS (6)
  1. PANTOPRAZOLE [Suspect]
     Indication: ABDOMINAL PAIN UPPER
     Dosage: 2 DF, DAILY (PRESUMABLY 80 MG PER DAY)
     Route: 048
     Dates: start: 20130617, end: 20130619
  2. PANTOPRAZOLE [Suspect]
     Indication: DIARRHOEA
  3. PANTOZOL [Suspect]
     Indication: ABDOMINAL PAIN UPPER
     Dosage: UNK, QD
     Route: 042
     Dates: start: 20130620, end: 20130629
  4. PANTOZOL [Suspect]
     Indication: DIARRHOEA
  5. VITAMIN B12 SUPPLEMENTATION NOS [Concomitant]
     Dosage: UNK
     Route: 042
  6. FOLIC ACID [Concomitant]
     Dosage: 5 MG, 3X/DAY
     Dates: start: 20130617, end: 20130629

REACTIONS (9)
  - Anuria [Unknown]
  - Eye swelling [Not Recovered/Not Resolved]
  - Renal disorder [Not Recovered/Not Resolved]
  - Urinary incontinence [Not Recovered/Not Resolved]
  - Lymphadenopathy [Unknown]
  - Oedema peripheral [Recovered/Resolved]
  - Abdominal pain upper [Recovered/Resolved]
  - Urinary tract infection [Unknown]
  - Exfoliation syndrome [Unknown]
